FAERS Safety Report 6076236-3 (Version None)
Quarter: 2009Q1

REPORT INFORMATION
  Report Type: 
  Country: None (occurrence: None)
  Receive Date: 20090212
  Receipt Date: 20090205
  Transmission Date: 20090719
  Serious: Yes (Other)
  Sender: FDA-Public Use
  Company Number: US-JNJCH-2009003502

PATIENT
  Age: 37 Year
  Sex: Female

DRUGS (1)
  1. ZYRTEC-D 12 HOUR [Suspect]
     Indication: HYPERSENSITIVITY
     Dosage: TEXT:ONE TABLET ONCE DAILY
     Route: 048
     Dates: start: 19930101, end: 20081201

REACTIONS (3)
  - DEPENDENCE [None]
  - MIGRAINE [None]
  - WITHDRAWAL SYNDROME [None]
